FAERS Safety Report 16528623 (Version 4)
Quarter: 2019Q4

REPORT INFORMATION
  Report Type: Report from Study
  Country: GB (occurrence: GB)
  Receive Date: 20190703
  Receipt Date: 20191126
  Transmission Date: 20200122
  Serious: Yes (Death, Hospitalization)
  Sender: FDA-Public Use
  Company Number: GB-ACTELION-A-US2019-192665

PATIENT
  Age: 33 Year
  Sex: Female

DRUGS (17)
  1. VENTAVIS [Suspect]
     Active Substance: ILOPROST
     Indication: PULMONARY HYPERTENSION
     Dosage: 2.5 MCG/24HR, 6ID
     Route: 055
  2. BUMETANIDE. [Concomitant]
     Active Substance: BUMETANIDE
  3. CIPROFLOXACIN. [Concomitant]
     Active Substance: CIPROFLOXACIN
  4. ENOXAPARIN [Concomitant]
     Active Substance: ENOXAPARIN
  5. FOLATE [Concomitant]
     Active Substance: FOLATE SODIUM
     Indication: IRON DEFICIENCY ANAEMIA
  6. RIOCIGUAT. [Concomitant]
     Active Substance: RIOCIGUAT
     Indication: PULMONARY HYPERTENSION
  7. CITALOPRAM [Concomitant]
     Active Substance: CITALOPRAM HYDROBROMIDE
  8. MIRTAZAPINE. [Concomitant]
     Active Substance: MIRTAZAPINE
  9. GABAPENTIN. [Concomitant]
     Active Substance: GABAPENTIN
  10. SALBUTAMOL [Concomitant]
     Active Substance: ALBUTEROL
  11. EVACAL D3 [Concomitant]
  12. FENTANYL. [Concomitant]
     Active Substance: FENTANYL
  13. FERROUS FUMARATE [Concomitant]
     Active Substance: FERROUS FUMARATE
  14. MORPHINE [Concomitant]
     Active Substance: MORPHINE
  15. CYCLIZINE [Concomitant]
     Active Substance: CYCLIZINE
  16. MOVICOL [Concomitant]
     Active Substance: POLYETHYLENE GLYCOL 3350\POTASSIUM CHLORIDE\SODIUM BICARBONATE\SODIUM CHLORIDE
  17. OMEPRAZOLE. [Concomitant]
     Active Substance: OMEPRAZOLE

REACTIONS (4)
  - Hospitalisation [Unknown]
  - Device issue [Unknown]
  - Right ventricular failure [Fatal]
  - Thrombosis [Fatal]

NARRATIVE: CASE EVENT DATE: 20191005
